FAERS Safety Report 4335310-X (Version None)
Quarter: 2004Q2

REPORT INFORMATION
  Report Type: 
  Country: None (occurrence: None)
  Receive Date: 20040408
  Receipt Date: 20040408
  Transmission Date: 20050107
  Serious: No
  Sender: FDA-Public Use
  Company Number: None

PATIENT
  Age: 21 Year
  Sex: Male

DRUGS (1)
  1. NAPROXEN [Suspect]
     Dosage: ONE   BID   ORAL
     Route: 048
     Dates: start: 20040307, end: 20040307

REACTIONS (3)
  - FACE OEDEMA [None]
  - FLUSHING [None]
  - HOT FLUSH [None]
